FAERS Safety Report 8114940 (Version 5)
Quarter: 2013Q2

REPORT INFORMATION
  Report Type: Spontaneous
  Country: US (occurrence: US)
  Receive Date: 20110831
  Receipt Date: 20130425
  Transmission Date: 20140414
  Serious: Yes (Other)
  Sender: FDA-Public Use
  Company Number: US-ROCHE-798720

PATIENT
  Age: 14 Year
  Sex: Male
  Weight: 99.88 kg

DRUGS (2)
  1. ACCUTANE [Suspect]
     Indication: ACNE
     Dosage: 40 MG
     Route: 065
     Dates: start: 19871229, end: 19880422
  2. ACCUTANE [Suspect]
     Route: 065

REACTIONS (11)
  - Colitis ulcerative [Unknown]
  - Inflammatory bowel disease [Unknown]
  - Depression [Not Recovered/Not Resolved]
  - Crohn^s disease [Unknown]
  - Large intestine polyp [Unknown]
  - Injury [Unknown]
  - Colitis [Unknown]
  - Epistaxis [Unknown]
  - Eyelid oedema [Unknown]
  - Erythema of eyelid [Unknown]
  - Urticaria [Recovering/Resolving]
